FAERS Safety Report 6503715-4 (Version None)
Quarter: 2009Q4

REPORT INFORMATION
  Report Type: 
  Country: None (occurrence: None)
  Receive Date: 20091217
  Receipt Date: 20091209
  Transmission Date: 20100525
  Serious: Yes (Other)
  Sender: FDA-Public Use
  Company Number: PHHY2009GB54964

PATIENT

DRUGS (1)
  1. FEMARA [Suspect]
     Dosage: UNK
     Route: 048

REACTIONS (3)
  - HYPOAESTHESIA [None]
  - MIGRAINE [None]
  - PARAESTHESIA [None]
